FAERS Safety Report 10581324 (Version 1)
Quarter: 2014Q4

REPORT INFORMATION
  Report Type: Spontaneous
  Country: US (occurrence: US)
  Receive Date: 20141113
  Receipt Date: 20141113
  Transmission Date: 20150529
  Serious: No
  Sender: FDA-Public Use
  Company Number: US-B.I. PHARMACEUTICALS,INC./RIDGEFIELD-2014-BI-52911BP

PATIENT
  Age: 71 Year
  Sex: Male
  Weight: 86.36 kg

DRUGS (5)
  1. ENALAPRIL [Concomitant]
     Active Substance: ENALAPRIL
     Indication: HYPERTENSION
     Dosage: 20 MG
     Route: 048
  2. SOTALOL. [Concomitant]
     Active Substance: SOTALOL
     Dosage: 200 MG
     Route: 048
     Dates: start: 201210
  3. PRADAXA [Suspect]
     Active Substance: DABIGATRAN ETEXILATE MESYLATE
     Indication: ATRIAL FIBRILLATION
     Dosage: 300 MG
     Route: 048
     Dates: start: 201303
  4. SOTALOL. [Concomitant]
     Active Substance: SOTALOL
     Indication: HEART RATE
     Dosage: 200 MG
     Route: 048
     Dates: start: 201210
  5. SULAR [Concomitant]
     Active Substance: NISOLDIPINE
     Indication: HYPERTENSION
     Dosage: 17.5 MG
     Route: 048

REACTIONS (1)
  - Joint swelling [Not Recovered/Not Resolved]

NARRATIVE: CASE EVENT DATE: 201408
